FAERS Safety Report 7879408-8 (Version None)
Quarter: 2011Q4

REPORT INFORMATION
  Report Type: 
  Country: None (occurrence: None)
  Receive Date: 20111101
  Receipt Date: 20111028
  Transmission Date: 20120403
  Serious: Yes (Other)
  Sender: FDA-Public Use
  Company Number: US-PFIZER INC-2011264506

PATIENT
  Sex: Female
  Weight: 61.224 kg

DRUGS (2)
  1. IBUPROFEN (ADVIL) [Suspect]
     Indication: MUSCLE SPASMS
     Dosage: UNK
     Dates: start: 20111026, end: 20111027
  2. VITAMIN TAB [Concomitant]
     Dosage: UNK

REACTIONS (1)
  - GALLBLADDER DISORDER [None]
